FAERS Safety Report 18403024 (Version 3)
Quarter: 2025Q3

REPORT INFORMATION
  Report Type: Spontaneous
  Country: EU (occurrence: EU)
  Receive Date: 20201020
  Receipt Date: 20250912
  Transmission Date: 20251021
  Serious: Yes (Life-Threatening, Hospitalization, Other)
  Sender: AUROBINDO
  Company Number: EU-ESTEVE-2020-07753

PATIENT
  Age: 66 Year
  Sex: Female

DRUGS (1)
  1. CIPROFLOXACIN [Suspect]
     Active Substance: CIPROFLOXACIN
     Indication: Gastroenteritis
     Route: 065

REACTIONS (6)
  - Purpura fulminans [Recovered/Resolved]
  - Antiphospholipid syndrome [Recovered/Resolved]
  - Peripheral swelling [Recovered/Resolved]
  - Pain [Recovered/Resolved]
  - Haematoma [Recovered/Resolved]
  - Urine output decreased [Recovered/Resolved]
